FAERS Safety Report 23231103 (Version 1)
Quarter: 2023Q4

REPORT INFORMATION
  Report Type: Spontaneous
  Country: AT (occurrence: AT)
  Receive Date: 20231127
  Receipt Date: 20231127
  Transmission Date: 20240109
  Serious: Yes (Other)
  Sender: FDA-Public Use
  Company Number: AT-SUN PHARMACEUTICAL INDUSTRIES LTD-2023R1-420409

PATIENT
  Age: 17 Year
  Sex: Female

DRUGS (1)
  1. INDOMETHACIN [Suspect]
     Active Substance: INDOMETHACIN
     Indication: Primary stabbing headache
     Dosage: 75 MILLIGRAM, QD
     Route: 048

REACTIONS (4)
  - Therapy partial responder [Unknown]
  - Nausea [Unknown]
  - Vertigo [Unknown]
  - Fatigue [Unknown]
